FAERS Safety Report 23589980 (Version 1)
Quarter: 2024Q1

REPORT INFORMATION
  Report Type: Spontaneous
  Country: US (occurrence: US)
  Receive Date: 20240304
  Receipt Date: 20240304
  Transmission Date: 20240410
  Serious: No
  Sender: FDA-Public Use
  Company Number: US-BRISTOL-MYERS SQUIBB COMPANY-2024-031690

PATIENT
  Age: 43 Year
  Sex: Female

DRUGS (2)
  1. OPDIVO [Suspect]
     Active Substance: NIVOLUMAB
     Indication: Neoplasm malignant
     Dates: start: 20240208
  2. YERVOY [Suspect]
     Active Substance: IPILIMUMAB
     Indication: Neoplasm malignant

REACTIONS (1)
  - Off label use [Unknown]

NARRATIVE: CASE EVENT DATE: 20240208
